FAERS Safety Report 9695813 (Version 1)
Quarter: 2013Q4

REPORT INFORMATION
  Report Type: Spontaneous
  Country: GB (occurrence: GB)
  Receive Date: 20131119
  Receipt Date: 20131119
  Transmission Date: 20140711
  Serious: Yes (Life-Threatening, Hospitalization)
  Sender: FDA-Public Use
  Company Number: GB-PFIZER INC-2013327703

PATIENT
  Age: 71 Year
  Sex: Male

DRUGS (15)
  1. DOXORUBICIN [Suspect]
     Indication: LUNG NEOPLASM MALIGNANT
     Dates: start: 201310
  2. CYCLOPHOSPHAMIDE [Suspect]
     Indication: LUNG NEOPLASM MALIGNANT
     Dosage: UNK
     Dates: start: 201310
  3. VINCRISTINE [Suspect]
     Indication: LUNG NEOPLASM MALIGNANT
     Dosage: UNK
     Dates: start: 201310
  4. PHENYTOIN [Concomitant]
     Dosage: UNK
  5. PHENOBARBITAL [Concomitant]
  6. SENNA [Concomitant]
     Dosage: UNK
  7. BISACODYL [Concomitant]
     Dosage: UNK
  8. ATORVASTATIN [Concomitant]
     Dosage: UNK
  9. OXYCONTIN [Concomitant]
     Dosage: UNK
  10. SOTALOL [Concomitant]
     Dosage: UNK
  11. ACETYLSALICYLIC ACID [Concomitant]
     Dosage: UNK
  12. ESOMEPRAZOLE [Concomitant]
  13. PREDNISOLONE [Concomitant]
     Dosage: UNK
  14. ALENDRONATE [Concomitant]
     Dosage: UNK
  15. CALCICHEW-D3 [Concomitant]
     Dosage: UNK

REACTIONS (1)
  - Neutropenic sepsis [Not Recovered/Not Resolved]
